FAERS Safety Report 6898590-2 (Version None)
Quarter: 2010Q3

REPORT INFORMATION
  Report Type: 
  Country: None (occurrence: None)
  Receive Date: 20100729
  Receipt Date: 20100721
  Transmission Date: 20110219
  Serious: Yes (Hospitalization)
  Sender: FDA-Public Use
  Company Number: TPA2010A04193

PATIENT
  Age: 73 Year
  Sex: Male
  Weight: 111.5849 kg

DRUGS (9)
  1. ACTOS [Suspect]
     Indication: DIABETES MELLITUS
     Dosage: 30 MG, 1 IN 1 D, PER ORAL
     Route: 048
     Dates: start: 20060401, end: 20100718
  2. LEVOTHYROXINE SODIUM [Concomitant]
  3. GLIMEPIRIDE [Concomitant]
  4. PROTONIX [Concomitant]
  5. COLCHICINE (COLCHICINE) [Concomitant]
  6. GEMFIBROZIL [Concomitant]
  7. NIASPAN [Concomitant]
  8. ASPIRIN [Concomitant]
  9. ALLOPURINOL [Concomitant]

REACTIONS (7)
  - ABDOMINAL PAIN UPPER [None]
  - FATIGUE [None]
  - GASTROINTESTINAL HAEMORRHAGE [None]
  - INCREASED APPETITE [None]
  - INFLUENZA LIKE ILLNESS [None]
  - MUSCLE ATROPHY [None]
  - WEIGHT INCREASED [None]
